FAERS Safety Report 25214215 (Version 3)
Quarter: 2025Q3

REPORT INFORMATION
  Report Type: Spontaneous
  Country: IN (occurrence: IN)
  Receive Date: 20250418
  Receipt Date: 20250723
  Transmission Date: 20251020
  Serious: Yes (Hospitalization, Disabling, Other)
  Sender: PFIZER
  Company Number: IN-PFIZER INC-PV202500019344

PATIENT
  Age: 56 Year
  Sex: Female
  Weight: 56.2 kg

DRUGS (7)
  1. LORLATINIB [Suspect]
     Active Substance: LORLATINIB
     Indication: Lung neoplasm malignant
     Dosage: 50 MG, 1X/DAY
     Route: 048
     Dates: start: 20250210
  2. LORLATINIB [Suspect]
     Active Substance: LORLATINIB
     Dosage: 37.5 MG, DAILY
     Route: 048
     Dates: start: 20250211
  3. LORLATINIB [Suspect]
     Active Substance: LORLATINIB
     Dosage: 3 TABLETS OF 25MG DAILY X 15 DAYS
     Route: 048
     Dates: start: 20250304
  4. LORLATINIB [Suspect]
     Active Substance: LORLATINIB
     Route: 048
  5. ROZUCOR EZ [Concomitant]
     Indication: Lipids increased
     Dosage: 10 MG, 1X/DAY
  6. RIVAROXABAN [Concomitant]
     Active Substance: RIVAROXABAN
     Indication: Hypercoagulation
     Dosage: 15 MG, 1X/DAY
  7. PANTOPRAZOLE [Concomitant]
     Active Substance: PANTOPRAZOLE
     Indication: Hyperchlorhydria
     Dosage: 40 MG, 1X/DAY

REACTIONS (16)
  - Metastasis [Unknown]
  - Paraesthesia [Recovering/Resolving]
  - Hypoaesthesia [Recovering/Resolving]
  - Neuropathy peripheral [Unknown]
  - Carpal tunnel syndrome [Unknown]
  - Hypertension [Recovering/Resolving]
  - Blood cholesterol increased [Recovering/Resolving]
  - Dyslipidaemia [Recovering/Resolving]
  - Blood potassium increased [Unknown]
  - Glycosylated haemoglobin increased [Unknown]
  - Blood glucose increased [Unknown]
  - Blood creatinine decreased [Unknown]
  - Weight increased [Unknown]
  - Peripheral swelling [Unknown]
  - Loss of personal independence in daily activities [Recovering/Resolving]
  - Off label use [Unknown]

NARRATIVE: CASE EVENT DATE: 20250101
